FAERS Safety Report 16225179 (Version 2)
Quarter: 2019Q2

REPORT INFORMATION
  Report Type: Spontaneous
  Country: US (occurrence: US)
  Receive Date: 20190422
  Receipt Date: 20190509
  Transmission Date: 20190711
  Serious: Yes (Other)
  Sender: FDA-Public Use
  Company Number: US-ASTRAZENECA-2019SE11419

PATIENT

DRUGS (11)
  1. MUCINEX [Concomitant]
     Active Substance: GUAIFENESIN
  2. NEXIUM [Suspect]
     Active Substance: ESOMEPRAZOLE MAGNESIUM
     Route: 048
  3. LISINOPRIL. [Concomitant]
     Active Substance: LISINOPRIL
  4. VERAPAMIL [Concomitant]
     Active Substance: VERAPAMIL HYDROCHLORIDE
  5. CLOPIDOGREL [Concomitant]
     Active Substance: CLOPIDOGREL BISULFATE
  6. NOVOLOG [Concomitant]
     Active Substance: INSULIN ASPART
  7. GLIMEPIRIDE. [Concomitant]
     Active Substance: GLIMEPIRIDE
  8. NEXIUM 24HR [Suspect]
     Active Substance: ESOMEPRAZOLE MAGNESIUM
     Route: 048
  9. AZITHROMYCIN ANHYDROUS. [Concomitant]
     Active Substance: AZITHROMYCIN ANHYDROUS
  10. METOPROLOL. [Concomitant]
     Active Substance: METOPROLOL
  11. HYDRALAZINE [Concomitant]
     Active Substance: HYDRALAZINE HYDROCHLORIDE

REACTIONS (5)
  - End stage renal disease [Unknown]
  - Chronic kidney disease [Unknown]
  - Renal failure [Unknown]
  - Nephrogenic anaemia [Unknown]
  - Rebound acid hypersecretion [Unknown]
